FAERS Safety Report 8875267 (Version 2)
Quarter: 2012Q4

REPORT INFORMATION
  Report Type: Report from Study
  Country: US (occurrence: US)
  Receive Date: 20121029
  Receipt Date: 20121214
  Transmission Date: 20130627
  Serious: Yes (Other)
  Sender: FDA-Public Use
  Company Number: US-VERTEX PHARMACEUTICAL INC.-2012-021321

PATIENT
  Age: 57 Year
  Sex: Female

DRUGS (5)
  1. VX-950 (TELAPREVIR) [Suspect]
     Indication: HEPATITIS C
     Dosage: 750 mg, tid
     Route: 048
     Dates: start: 2012
  2. PEGASYS [Suspect]
     Indication: HEPATITIS C
     Dosage: 135 UNK, UNK
     Route: 058
     Dates: start: 2012
  3. PEGASYS [Suspect]
     Dosage: 90 UNK, UNK
     Route: 058
     Dates: start: 2012
  4. PEGASYS [Suspect]
     Dosage: 180 UNK, UNK
     Route: 058
     Dates: start: 2012
  5. RIBASPHERE [Suspect]
     Indication: HEPATITIS C
     Dosage: 400 mg, bid
     Route: 048
     Dates: start: 2012

REACTIONS (5)
  - Loss of consciousness [Recovered/Resolved]
  - Drug dose omission [Recovered/Resolved]
  - Viral load increased [Unknown]
  - Asthenia [Unknown]
  - Anaemia [Unknown]
